FAERS Safety Report 7556664-7 (Version None)
Quarter: 2011Q2

REPORT INFORMATION
  Report Type: 
  Country: None (occurrence: None)
  Receive Date: 20110609
  Receipt Date: 20110602
  Transmission Date: 20111010
  Serious: Yes (Hospitalization)
  Sender: FDA-Public Use
  Company Number: DSA_44551_2010

PATIENT
  Sex: Male

DRUGS (14)
  1. NEXIUM /01479303/ [Concomitant]
  2. HYZAAR [Concomitant]
  3. ROZEREM [Concomitant]
  4. SYNTHROID [Concomitant]
  5. METFORMIN HCL [Concomitant]
  6. XENAZINE [Suspect]
  7. QUESTRAN [Concomitant]
  8. XENAZINE [Suspect]
     Indication: DYSKINESIA
     Dosage: SEE IMAGE
     Route: 048
     Dates: start: 20101103, end: 20100101
  9. XENAZINE [Suspect]
     Indication: DYSKINESIA
     Dosage: SEE IMAGE
     Route: 048
     Dates: end: 20100101
  10. XENAZINE [Suspect]
     Indication: DYSKINESIA
     Dosage: SEE IMAGE
     Route: 048
     Dates: start: 20110516
  11. AMBIEN [Concomitant]
  12. ASACOL [Concomitant]
  13. HUMULIN R [Concomitant]
  14. VITAMIN B [Concomitant]

REACTIONS (5)
  - DIZZINESS [None]
  - MOVEMENT DISORDER [None]
  - MUSCULAR WEAKNESS [None]
  - ERUCTATION [None]
  - NAUSEA [None]
